FAERS Safety Report 20877887 (Version 2)
Quarter: 2022Q3

REPORT INFORMATION
  Report Type: Spontaneous
  Country: GB (occurrence: None)
  Receive Date: 20220526
  Receipt Date: 20220712
  Transmission Date: 20221027
  Serious: Yes (Other)
  Sender: FDA-Public Use
  Company Number: 2022A191625

PATIENT

DRUGS (2)
  1. BENRALIZUMAB [Suspect]
     Active Substance: BENRALIZUMAB
     Route: 058
  2. BENRALIZUMAB [Concomitant]
     Active Substance: BENRALIZUMAB

REACTIONS (2)
  - General symptom [Unknown]
  - Drug ineffective [Unknown]
